FAERS Safety Report 9467339 (Version 3)
Quarter: 2013Q3

REPORT INFORMATION
  Report Type: Spontaneous
  Country: US (occurrence: US)
  Receive Date: 20130821
  Receipt Date: 20130926
  Transmission Date: 20140515
  Serious: Yes (Life-Threatening)
  Sender: FDA-Public Use
  Company Number: US-ROCHE-1263395

PATIENT
  Age: 45 Year
  Sex: Female
  Weight: 110.32 kg

DRUGS (15)
  1. XOLAIR [Suspect]
     Indication: PRODUCT USED FOR UNKNOWN INDICATION
     Route: 058
     Dates: start: 20130312
  2. PREDNISONE [Concomitant]
     Route: 048
  3. SYNTHROID [Concomitant]
     Indication: HYPOTHYROIDISM
     Route: 048
  4. ZANTAC [Concomitant]
     Indication: PRURITUS
     Route: 065
  5. ZANTAC [Concomitant]
     Indication: GASTROOESOPHAGEAL REFLUX DISEASE
  6. ZYRTEC [Concomitant]
     Indication: PRURITUS
     Route: 048
  7. ADVAIR [Concomitant]
     Indication: ASTHMA
     Dosage: 500/50 1 PUFF BID
     Route: 055
  8. DOXEPIN [Concomitant]
     Indication: PRURITUS
     Route: 048
  9. PERCOCET [Concomitant]
     Dosage: 5/325 1-2 Q6H PRN
     Route: 048
  10. MIRAPEX [Concomitant]
     Route: 048
  11. ALBUTEROL [Concomitant]
     Indication: ASTHMA
     Dosage: 2 PUFFS Q 4-6 HRS, PRN
     Route: 055
  12. XOPENEX [Concomitant]
  13. SINGULAIR [Concomitant]
     Indication: ASTHMA
     Route: 048
  14. SINGULAIR [Concomitant]
     Indication: HYPERSENSITIVITY
  15. VALIUM [Concomitant]
     Route: 048

REACTIONS (1)
  - Pulmonary embolism [Recovering/Resolving]
